FAERS Safety Report 19232949 (Version 1)
Quarter: 2021Q2

REPORT INFORMATION
  Report Type: Report from Study
  Country: None (occurrence: CA)
  Receive Date: 20210507
  Receipt Date: 20210507
  Transmission Date: 20210717
  Serious: Yes (Other)
  Sender: FDA-Public Use
  Company Number: CA-ABBVIE-21K-028-3859405-00

PATIENT
  Sex: Female

DRUGS (7)
  1. QUESTRAN [Concomitant]
     Active Substance: CHOLESTYRAMINE
     Indication: PRODUCT USED FOR UNKNOWN INDICATION
  2. HUMIRA [Suspect]
     Active Substance: ADALIMUMAB
     Indication: CROHN^S DISEASE
     Route: 058
     Dates: start: 20110105
  3. HUMIRA [Suspect]
     Active Substance: ADALIMUMAB
     Route: 058
     Dates: start: 202009, end: 202103
  4. ENTYVIO [Concomitant]
     Active Substance: VEDOLIZUMAB
     Indication: PRODUCT USED FOR UNKNOWN INDICATION
     Dates: start: 201807, end: 201811
  5. LOPERAMIDE [Concomitant]
     Active Substance: LOPERAMIDE
     Indication: PRODUCT USED FOR UNKNOWN INDICATION
  6. AZATHIOPRINE. [Concomitant]
     Active Substance: AZATHIOPRINE
     Indication: PRODUCT USED FOR UNKNOWN INDICATION
     Dates: start: 2010, end: 201807
  7. ENTYVIO [Concomitant]
     Active Substance: VEDOLIZUMAB
     Dates: start: 202104

REACTIONS (13)
  - Adenocarcinoma of colon [Recovered/Resolved]
  - Intestinal stenosis [Unknown]
  - Pneumaturia [Unknown]
  - Drug ineffective [Unknown]
  - Crohn^s disease [Recovered/Resolved]
  - Thyroid mass [Unknown]
  - Faecal calprotectin increased [Unknown]
  - Short-bowel syndrome [Unknown]
  - Lymphadenopathy [Unknown]
  - Aphthous ulcer [Unknown]
  - Oedema peripheral [Not Recovered/Not Resolved]
  - Gastrointestinal wall thickening [Unknown]
  - Carcinoembryonic antigen increased [Unknown]

NARRATIVE: CASE EVENT DATE: 2018
